FAERS Safety Report 11358490 (Version 1)
Quarter: 2015Q3

REPORT INFORMATION
  Report Type: Spontaneous
  Country: US (occurrence: US)
  Receive Date: 20150803
  Receipt Date: 20150803
  Transmission Date: 20151125
  Serious: No
  Sender: FDA-Public Use
  Company Number: US-ELI_LILLY_AND_COMPANY-US_0507120313

PATIENT
  Sex: Male

DRUGS (4)
  1. ZYPREXA [Suspect]
     Active Substance: OLANZAPINE
     Indication: MENTAL DISORDER
     Dosage: UNK, UNKNOWN
     Route: 048
     Dates: start: 2001
  2. BLOOD PRESSURE PILL [Concomitant]
     Dosage: UNK, UNKNOWN
     Route: 048
  3. ^ANTIPALPATATION MEDICATION^ [Concomitant]
     Dosage: UNK, UNKNOWN
     Route: 048
  4. ATENOLOL. [Concomitant]
     Active Substance: ATENOLOL
     Indication: PALPITATIONS

REACTIONS (5)
  - Weight increased [Unknown]
  - Limb discomfort [Unknown]
  - Cardiac disorder [Unknown]
  - Heart rate irregular [Not Recovered/Not Resolved]
  - Palpitations [Unknown]
